FAERS Safety Report 8295713-8 (Version None)
Quarter: 2012Q2

REPORT INFORMATION
  Report Type: 
  Country: None (occurrence: None)
  Receive Date: 20120416
  Receipt Date: 20120416
  Transmission Date: 20120825
  Serious: Yes (Other)
  Sender: FDA-Public Use
  Company Number: None

PATIENT
  Age: 48 Year
  Sex: Male
  Weight: 81.6475 kg

DRUGS (2)
  1. BYETTA [Suspect]
     Indication: TYPE 2 DIABETES MELLITUS
     Dosage: BYETTA 5MCG BID SC (057)
     Route: 058
     Dates: start: 20111201, end: 20120409
  2. JANUVIA [Suspect]
     Indication: TYPE 2 DIABETES MELLITUS
     Dosage: JANUVIA 100 MG QD PO (047)
     Route: 048
     Dates: start: 20100101, end: 20120409

REACTIONS (3)
  - LIPASE INCREASED [None]
  - NAUSEA [None]
  - AMYLASE INCREASED [None]
